FAERS Safety Report 15616191 (Version 1)
Quarter: 2018Q4

REPORT INFORMATION
  Report Type: Spontaneous
  Country: US (occurrence: US)
  Receive Date: 20181108
  Receipt Date: 20181108
  Transmission Date: 20190205
  Serious: No
  Sender: FDA-Public Use
  Company Number: None

PATIENT
  Age: 76 Year
  Sex: Female

DRUGS (1)
  1. PROLIA [Suspect]
     Active Substance: DENOSUMAB
     Dates: start: 201803

REACTIONS (6)
  - Palpitations [None]
  - Inadequate analgesia [None]
  - Post procedural complication [None]
  - Pain in extremity [None]
  - Pain [None]
  - Spinal column stenosis [None]

NARRATIVE: CASE EVENT DATE: 20181105
